FAERS Safety Report 8120364-5 (Version None)
Quarter: 2012Q1

REPORT INFORMATION
  Report Type: 
  Country: None (occurrence: None)
  Receive Date: 20120207
  Receipt Date: 20120130
  Transmission Date: 20120608
  Serious: Yes (Other)
  Sender: FDA-Public Use
  Company Number: PT-GLAXOSMITHKLINE-B0763068A

PATIENT
  Sex: Male
  Weight: 62 kg

DRUGS (1)
  1. REQUIP [Suspect]
     Indication: PARKINSON'S DISEASE
     Dosage: 16MG PER DAY
     Route: 048

REACTIONS (4)
  - MOVEMENT DISORDER [None]
  - PRODUCT QUALITY ISSUE [None]
  - MUSCULAR WEAKNESS [None]
  - FATIGUE [None]
